FAERS Safety Report 8446881-6 (Version None)
Quarter: 2012Q2

REPORT INFORMATION
  Report Type: 
  Country: None (occurrence: None)
  Receive Date: 20120612
  Receipt Date: 20120612
  Transmission Date: 20120825
  Serious: Yes (Hospitalization)
  Sender: FDA-Public Use
  Company Number: None

PATIENT
  Age: 59 Year
  Sex: Male

DRUGS (2)
  1. PHENYTOIN [Suspect]
     Dosage: 300 MG PO
     Route: 048
     Dates: start: 20120227, end: 20120604
  2. DIVALPROEX SODIUM [Suspect]
     Dates: start: 20091112

REACTIONS (1)
  - MENTAL STATUS CHANGES [None]
